FAERS Safety Report 16890939 (Version 2)
Quarter: 2019Q4

REPORT INFORMATION
  Report Type: Spontaneous
  Country: US (occurrence: US)
  Receive Date: 20191007
  Receipt Date: 20191007
  Transmission Date: 20200122
  Serious: Yes (Other)
  Sender: FDA-Public Use
  Company Number: US-PFIZER INC-2019422055

PATIENT
  Age: 69 Year
  Sex: Male

DRUGS (11)
  1. CEFTRIAXONE. [Concomitant]
     Active Substance: CEFTRIAXONE
     Indication: APPENDICITIS PERFORATED
     Dosage: UNK (TREATED FOR 17 DAYS)
  2. CEFTRIAXONE. [Concomitant]
     Active Substance: CEFTRIAXONE
     Indication: STREPTOCOCCAL BACTERAEMIA
     Dosage: UNK (THEN RECEIVED FOR 10 DAYS)
  3. AMOXICILLIN AND CLAVUNATE POTASSIUM [Concomitant]
     Active Substance: AMOXICILLIN\CLAVULANATE POTASSIUM
     Indication: APPENDICITIS PERFORATED
     Dosage: UNK (FOR 14 DAYS)
     Route: 048
  4. AMOXICILLIN AND CLAVUNATE POTASSIUM [Concomitant]
     Active Substance: AMOXICILLIN\CLAVULANATE POTASSIUM
     Indication: STREPTOCOCCAL BACTERAEMIA
  5. METRONIDAZOLE. [Suspect]
     Active Substance: METRONIDAZOLE
     Dosage: UNK
  6. CIPROFLOXACIN. [Concomitant]
     Active Substance: CIPROFLOXACIN
     Indication: APPENDICITIS PERFORATED
     Dosage: UNK (FOR 14 DAYS)
  7. METRONIDAZOLE. [Suspect]
     Active Substance: METRONIDAZOLE
     Indication: APPENDICITIS PERFORATED
     Dosage: UNK (TREATED FOR 17 DAYS)
  8. CIPROFLOXACIN. [Concomitant]
     Active Substance: CIPROFLOXACIN
     Indication: STREPTOCOCCAL BACTERAEMIA
  9. METRONIDAZOLE. [Suspect]
     Active Substance: METRONIDAZOLE
     Indication: STREPTOCOCCAL BACTERAEMIA
     Dosage: UNK (THEN RECEIVED FOR 10 DAYS)
  10. MOXIFLOXACIN. [Concomitant]
     Active Substance: MOXIFLOXACIN
     Indication: APPENDICITIS PERFORATED
     Dosage: UNK
  11. MOXIFLOXACIN. [Concomitant]
     Active Substance: MOXIFLOXACIN
     Indication: STREPTOCOCCAL BACTERAEMIA

REACTIONS (3)
  - Neuropathy peripheral [Not Recovered/Not Resolved]
  - Toxic encephalopathy [Recovered/Resolved]
  - Neurotoxicity [Recovered/Resolved]
